FAERS Safety Report 17072177 (Version 2)
Quarter: 2020Q1

REPORT INFORMATION
  Report Type: Spontaneous
  Country: US (occurrence: US)
  Receive Date: 20191125
  Receipt Date: 20200120
  Transmission Date: 20200409
  Serious: Yes (Hospitalization)
  Sender: FDA-Public Use
  Company Number: US-ASTRAZENECA-2019SF66935

PATIENT
  Age: 519 Day
  Sex: Male
  Weight: 12 kg

DRUGS (10)
  1. CAROSPIR [Concomitant]
     Active Substance: SPIRONOLACTONE
  2. SYNAGIS [Suspect]
     Active Substance: PALIVIZUMAB
     Indication: HYPOPLASTIC LEFT HEART SYNDROME
     Route: 030
  3. CHLOROTHIAZ [Concomitant]
  4. CLOPIDOGREL [Concomitant]
     Active Substance: CLOPIDOGREL BISULFATE
  5. PROPANOLOL [Concomitant]
     Active Substance: PROPRANOLOL HYDROCHLORIDE
  6. SYNAGIS [Suspect]
     Active Substance: PALIVIZUMAB
     Indication: HYPOPLASTIC LEFT HEART SYNDROME
     Dosage: 175.0MG UNKNOWN
     Route: 030
     Dates: start: 20191219
  7. ASPIRIN. [Concomitant]
     Active Substance: ASPIRIN
  8. SYNAGIS [Suspect]
     Active Substance: PALIVIZUMAB
     Indication: RESPIRATORY SYNCYTIAL VIRUS INFECTION
     Dosage: 175.0MG UNKNOWN
     Route: 030
     Dates: start: 20191219
  9. OMEPRAZOLE. [Concomitant]
     Active Substance: OMEPRAZOLE
  10. SYNAGIS [Suspect]
     Active Substance: PALIVIZUMAB
     Indication: RESPIRATORY SYNCYTIAL VIRUS INFECTION
     Route: 030

REACTIONS (4)
  - Influenza [Unknown]
  - Respiratory distress [Unknown]
  - Respiratory tract infection viral [Recovered/Resolved]
  - Pulmonary valve stenosis [Unknown]

NARRATIVE: CASE EVENT DATE: 20191009
